FAERS Safety Report 4457626-9 (Version None)
Quarter: 2004Q3

REPORT INFORMATION
  Report Type: 
  Country: None (occurrence: None)
  Receive Date: 20040922
  Receipt Date: 20040917
  Transmission Date: 20050211
  Serious: Yes (Hospitalization)
  Sender: FDA-Public Use
  Company Number: 04-09-1301

PATIENT
  Age: 67 Year
  Sex: Female

DRUGS (1)
  1. CLOZAPINE [Suspect]
     Dosage: 200-400MG QD ORAL
     Route: 048
     Dates: start: 20000301

REACTIONS (1)
  - PNEUMONIA ASPIRATION [None]
